FAERS Safety Report 10152686 (Version 3)
Quarter: 2014Q2

REPORT INFORMATION
  Report Type: Spontaneous
  Country: US (occurrence: US)
  Receive Date: 20140505
  Receipt Date: 20140623
  Transmission Date: 20141212
  Serious: Yes (Hospitalization)
  Sender: FDA-Public Use
  Company Number: US-BAYER-2014-064787

PATIENT
  Age: 21 Year
  Sex: Female
  Weight: 54.42 kg

DRUGS (2)
  1. MIRENA [Suspect]
     Indication: CONTRACEPTION
     Dosage: 20 MCG/24HR, CONT
     Route: 015
     Dates: start: 20080904, end: 20120717
  2. LEVORA [Concomitant]
     Dosage: UNK
     Dates: start: 20120614

REACTIONS (5)
  - Uterine perforation [Recovered/Resolved]
  - Injury [Recovered/Resolved]
  - Pain [Recovered/Resolved]
  - Emotional distress [None]
  - Device issue [None]
